FAERS Safety Report 20555040 (Version 2)
Quarter: 2024Q2

REPORT INFORMATION
  Report Type: Other
  Country: US (occurrence: None)
  Receive Date: 20220304
  Receipt Date: 20240405
  Transmission Date: 20240716
  Serious: Yes (Death, Other)
  Sender: FDA-Public Use
  Company Number: US-ROCHE-3033574

PATIENT
  Age: 87 Year
  Sex: Male
  Weight: 70.8 kg

DRUGS (25)
  1. ACTEMRA [Suspect]
     Active Substance: TOCILIZUMAB
     Indication: Giant cell arteritis
     Dosage: INJECT 162 MG/0.9 ML
     Route: 058
  2. ACTEMRA [Suspect]
     Active Substance: TOCILIZUMAB
  3. ACTEMRA [Suspect]
     Active Substance: TOCILIZUMAB
     Indication: Vasculitis necrotising
  4. ACTEMRA [Suspect]
     Active Substance: TOCILIZUMAB
  5. NORVASC [Concomitant]
     Active Substance: AMLODIPINE BESYLATE
  6. CYMBALTA [Concomitant]
     Active Substance: DULOXETINE HYDROCHLORIDE
  7. PROTONIX [Concomitant]
     Active Substance: PANTOPRAZOLE SODIUM
  8. XELJANZ XR [Concomitant]
     Active Substance: TOFACITINIB CITRATE
  9. INDERAL [Concomitant]
     Active Substance: PROPRANOLOL HYDROCHLORIDE
  10. FOSAMAX [Concomitant]
     Active Substance: ALENDRONATE SODIUM
  11. LIPITOR [Concomitant]
     Active Substance: ATORVASTATIN CALCIUM
  12. ALDACTONE [Concomitant]
     Active Substance: SPIRONOLACTONE
  13. MICARDIS [Concomitant]
     Active Substance: TELMISARTAN
  14. PLAQUENIL [Concomitant]
     Active Substance: HYDROXYCHLOROQUINE SULFATE
  15. FOLATE SODIUM [Concomitant]
     Active Substance: FOLATE SODIUM
  16. VITAMINS WITH MINERALS [Concomitant]
     Active Substance: MINERALS\VITAMINS
  17. TYLENOL [Concomitant]
     Active Substance: ACETAMINOPHEN
  18. CALCIUM [Concomitant]
     Active Substance: CALCIUM
  19. METHOTREXATE [Concomitant]
     Active Substance: METHOTREXATE
  20. PRILOSEC [Concomitant]
     Active Substance: OMEPRAZOLE MAGNESIUM
  21. ZETIA [Concomitant]
     Active Substance: EZETIMIBE
  22. CHOLECALCIFEROL [Concomitant]
     Active Substance: CHOLECALCIFEROL
  23. TOPROL XL [Concomitant]
     Active Substance: METOPROLOL SUCCINATE
  24. LASIX [Concomitant]
     Active Substance: FUROSEMIDE
  25. ASPIRIN [Concomitant]
     Active Substance: ASPIRIN

REACTIONS (3)
  - Drug ineffective [Unknown]
  - Ulcer haemorrhage [Unknown]
  - Death [Fatal]

NARRATIVE: CASE EVENT DATE: 20240215
